FAERS Safety Report 4885783-9 (Version None)
Quarter: 2006Q1

REPORT INFORMATION
  Report Type: 
  Country: None (occurrence: None)
  Receive Date: 20060117
  Receipt Date: 20060106
  Transmission Date: 20060701
  Serious: Yes (Hospitalization)
  Sender: FDA-Public Use
  Company Number: 216-20785-05120078

PATIENT
  Age: 68 Year
  Sex: Male

DRUGS (5)
  1. THALOMID [Suspect]
     Indication: PLASMACYTOMA
     Dosage: 300 MG, DAILY, ORAL
     Route: 048
     Dates: start: 20051013
  2. DEXAMETHASONE [Suspect]
     Indication: PLASMACYTOMA
     Dosage: 40 MG, DAYS 1-4 AND 14-18, ORAL
     Route: 048
     Dates: start: 20051013, end: 20051113
  3. INTRON (INTENT TO TREAT) (INTERFERON ALFA-2B) [Suspect]
     Indication: PLASMACYTOMA
  4. FUROSEMIDE [Concomitant]
  5. AMLODIPINE [Concomitant]

REACTIONS (4)
  - ABDOMINAL PAIN [None]
  - DYSPNOEA [None]
  - EMBOLISM [None]
  - LUNG INFILTRATION [None]
